FAERS Safety Report 19680642 (Version 1)
Quarter: 2021Q3

REPORT INFORMATION
  Report Type: Spontaneous
  Country: US (occurrence: US)
  Receive Date: 20210810
  Receipt Date: 20210810
  Transmission Date: 20211014
  Serious: Yes (Other)
  Sender: FDA-Public Use
  Company Number: None

PATIENT
  Age: 67 Year
  Sex: Male
  Weight: 94.5 kg

DRUGS (7)
  1. FINASTERIDE. [Concomitant]
     Active Substance: FINASTERIDE
  2. PANTOPRAZOLE [Concomitant]
     Active Substance: PANTOPRAZOLE
  3. TAMSULOSIN [Concomitant]
     Active Substance: TAMSULOSIN
  4. FLECAINIDE [Concomitant]
     Active Substance: FLECAINIDE
  5. LISINOPRIL. [Concomitant]
     Active Substance: LISINOPRIL
  6. XARELTO [Suspect]
     Active Substance: RIVAROXABAN
     Indication: ATRIAL FIBRILLATION
     Route: 048
     Dates: end: 20210802
  7. METOPROLOL TARTRATE. [Concomitant]
     Active Substance: METOPROLOL TARTRATE

REACTIONS (3)
  - Intentional dose omission [None]
  - Creatinine renal clearance decreased [None]
  - Melaena [None]

NARRATIVE: CASE EVENT DATE: 20210802
